FAERS Safety Report 25995155 (Version 1)
Quarter: 2025Q4

REPORT INFORMATION
  Report Type: Spontaneous
  Country: US (occurrence: None)
  Receive Date: 20251103
  Receipt Date: 20251103
  Transmission Date: 20260118
  Serious: Yes (Disabling)
  Sender: FDA-CTU
  Company Number: None

PATIENT
  Age: 25 Year
  Sex: Male
  Weight: 68.85 kg

DRUGS (8)
  1. CABOTEGRAVIR [Suspect]
     Active Substance: CABOTEGRAVIR
     Indication: Prophylaxis against HIV infection
     Dosage: OTHER FREQUENCY : EVERY 4 WEEKS;?
     Route: 030
     Dates: start: 20251029
  2. MONTELUKAST [Concomitant]
     Active Substance: MONTELUKAST
  3. FLUTICASONE [Concomitant]
     Active Substance: FLUTICASONE
  4. FEXOFENADINE [Concomitant]
     Active Substance: FEXOFENADINE HYDROCHLORIDE
  5. breast implants(silicone) [Concomitant]
  6. VITAMIN D3 [Concomitant]
     Active Substance: CHOLECALCIFEROL
  7. ACETAMINOPHEN [Concomitant]
     Active Substance: ACETAMINOPHEN
  8. ADVIL [Concomitant]
     Active Substance: IBUPROFEN

REACTIONS (9)
  - Injection site pain [None]
  - Gait disturbance [None]
  - Dysstasia [None]
  - Gait disturbance [None]
  - Pyrexia [None]
  - Headache [None]
  - Fatigue [None]
  - Abdominal pain upper [None]
  - Hunger [None]

NARRATIVE: CASE EVENT DATE: 20251029
